FAERS Safety Report 4966874-0 (Version None)
Quarter: 2006Q2

REPORT INFORMATION
  Report Type: 
  Country: None (occurrence: None)
  Receive Date: 20060407
  Receipt Date: 20041227
  Transmission Date: 20061013
  Serious: Yes (Disabling)
  Sender: FDA-Public Use
  Company Number: US-MERCK-0412USA02934

PATIENT
  Age: 66 Year
  Sex: Female

DRUGS (6)
  1. VYTORIN [Suspect]
     Indication: BLOOD CHOLESTEROL INCREASED
     Route: 048
     Dates: start: 20041108, end: 20041211
  2. VITAMINS (UNSPECIFIED) [Concomitant]
     Route: 065
  3. DIOVAN [Concomitant]
     Route: 065
  4. FIBERCON [Concomitant]
     Route: 065
  5. GASTROINTESTINAL PREPARATIONS (UNSPECIFIED) [Concomitant]
     Route: 065
  6. LEVOXYL [Concomitant]
     Route: 065

REACTIONS (26)
  - ADVERSE EVENT [None]
  - ARTHRALGIA [None]
  - ASTHENIA [None]
  - BONE PAIN [None]
  - DRY EYE [None]
  - DYSURIA [None]
  - FATIGUE [None]
  - FEELING ABNORMAL [None]
  - FEELING HOT [None]
  - GAIT DISTURBANCE [None]
  - GRIP STRENGTH DECREASED [None]
  - HYPERTENSION [None]
  - INSOMNIA [None]
  - IRRITABILITY [None]
  - MUSCLE SPASMS [None]
  - MUSCLE TIGHTNESS [None]
  - MUSCULOSKELETAL STIFFNESS [None]
  - MYALGIA [None]
  - POLLAKIURIA [None]
  - RHINORRHOEA [None]
  - SENSATION OF HEAVINESS [None]
  - SINUS DISORDER [None]
  - STRESS [None]
  - VISION BLURRED [None]
  - WEIGHT INCREASED [None]
  - WRONG TECHNIQUE IN DRUG USAGE PROCESS [None]
